FAERS Safety Report 11786757 (Version 2)
Quarter: 2015Q4

REPORT INFORMATION
  Report Type: Spontaneous
  Country: DE (occurrence: DE)
  Receive Date: 20151130
  Receipt Date: 20151222
  Transmission Date: 20160305
  Serious: Yes (Other)
  Sender: FDA-Public Use
  Company Number: DE-PFIZER INC-2015405574

PATIENT
  Age: 38 Year
  Sex: Female
  Weight: 59 kg

DRUGS (2)
  1. VENLAFAXINE HCL [Suspect]
     Active Substance: VENLAFAXINE HYDROCHLORIDE
     Dosage: 150 MG, DAILY (FROM  GW 31+4)
     Route: 048
  2. VENLAFAXINE HCL [Suspect]
     Active Substance: VENLAFAXINE HYDROCHLORIDE
     Indication: DEPRESSION
     Dosage: 225 MG, DAILY 1. TRIMESTER (0. - 38.2. GESTATIONAL WEEK)
     Route: 048

REACTIONS (4)
  - Foetal death [Unknown]
  - Umbilical cord abnormality [Unknown]
  - Gestational diabetes [Recovering/Resolving]
  - Stillbirth [Unknown]

NARRATIVE: CASE EVENT DATE: 2015
